FAERS Safety Report 24631073 (Version 1)
Quarter: 2024Q4

REPORT INFORMATION
  Report Type: Spontaneous
  Country: US (occurrence: None)
  Receive Date: 20241117
  Receipt Date: 20241117
  Transmission Date: 20250114
  Serious: Yes (Life-Threatening, Hospitalization, Disabling)
  Sender: Public
  Company Number: None

PATIENT
  Age: 27 Year
  Sex: Female
  Weight: 93.15 kg

DRUGS (1)
  1. CEFTRIAXONE [Suspect]
     Active Substance: CEFTRIAXONE
     Indication: Kidney infection
     Dates: start: 20241102, end: 20241103

REACTIONS (5)
  - Stevens-Johnson syndrome [None]
  - Renal disorder [None]
  - Lung disorder [None]
  - Cardiac disorder [None]
  - Liver disorder [None]

NARRATIVE: CASE EVENT DATE: 20241102
